FAERS Safety Report 10260132 (Version 1)
Quarter: 2014Q2

REPORT INFORMATION
  Report Type: Report from Study
  Country: US (occurrence: US)
  Receive Date: 20140625
  Receipt Date: 20140625
  Transmission Date: 20141212
  Serious: Yes (Other)
  Sender: FDA-Public Use
  Company Number: US-ABBVIE-14P-163-1250775-00

PATIENT
  Sex: Male

DRUGS (2)
  1. HUMIRA [Suspect]
     Indication: MATERNAL EXPOSURE TIMING UNSPECIFIED
     Route: 064
  2. HUMIRA [Suspect]
     Indication: MATERNAL EXPOSURE TIMING UNSPECIFIED

REACTIONS (4)
  - C-reactive protein increased [Not Recovered/Not Resolved]
  - Foetal exposure during pregnancy [Unknown]
  - Weight gain poor [Not Recovered/Not Resolved]
  - White blood cell count increased [Unknown]
